FAERS Safety Report 4607122-0 (Version None)
Quarter: 2005Q1

REPORT INFORMATION
  Report Type: 
  Country: None (occurrence: None)
  Receive Date: 20050310
  Receipt Date: 20050227
  Transmission Date: 20050727
  Serious: Yes (Other)
  Sender: FDA-Public Use
  Company Number: 2005010215

PATIENT
  Age: 65 Year
  Sex: Female
  Weight: 90.7194 kg

DRUGS (6)
  1. TIKOSYN [Suspect]
     Indication: ATRIAL FIBRILLATION
     Dosage: 1000 MG (500 MG, TWICE DAILY), ORAL
     Route: 048
     Dates: start: 20030501
  2. CHEMOTHERAPEUTICS FOR TOPICAL USE (CHEMOTHERAPEUTICS FOR TOPICAL USE) [Suspect]
     Indication: NEOPLASM MALIGNANT
  3. PANTOPRAZOLE (PANTOPRAZOLE) [Suspect]
     Indication: PAIN
     Dosage: 40 MG
  4. ASPIRIN [Concomitant]
  5. AMLODIPINE BESYLATE [Concomitant]
  6. WARFARIN SODIUM [Concomitant]

REACTIONS (8)
  - BREAST CANCER [None]
  - CONDITION AGGRAVATED [None]
  - FATIGUE [None]
  - FEELING ABNORMAL [None]
  - HIATUS HERNIA [None]
  - LYMPHOMA [None]
  - MALAISE [None]
  - NAUSEA [None]
